FAERS Safety Report 7911959-X (Version None)
Quarter: 2011Q4

REPORT INFORMATION
  Report Type: 
  Country: None (occurrence: None)
  Receive Date: 20111102
  Receipt Date: 20110816
  Transmission Date: 20120403
  Serious: Yes (Death, Hospitalization)
  Sender: FDA-Public Use
  Company Number: AUR-APL-2010-01113

PATIENT
  Age: 78 Year
  Sex: Female
  Weight: 49.8957 kg

DRUGS (3)
  1. TANEZUMAB (TANEZUMAB) [Suspect]
     Indication: BACK PAIN
     Dosage: (20 MG), INTRAVENOUS
     Route: 042
     Dates: start: 20100330, end: 20100330
  2. PRILOSEC [Concomitant]
  3. METOPROLOL TARTRATE [Suspect]
     Indication: HYPERTENSION
     Dosage: ORAL
     Route: 048
     Dates: start: 20060101

REACTIONS (1)
  - CARDIAC ARREST [None]
